FAERS Safety Report 22040812 (Version 1)
Quarter: 2023Q1

REPORT INFORMATION
  Report Type: Spontaneous
  Country: CA (occurrence: CA)
  Receive Date: 20230227
  Receipt Date: 20230227
  Transmission Date: 20230418
  Serious: Yes (Hospitalization)
  Sender: FDA-Public Use
  Company Number: CA-PFIZER INC-202300078019

PATIENT
  Sex: Male

DRUGS (6)
  1. ENCORAFENIB [Suspect]
     Active Substance: ENCORAFENIB
     Indication: Thyroid cancer metastatic
     Dosage: 450 MG, 1X/DAY
     Route: 065
  2. ENCORAFENIB [Suspect]
     Active Substance: ENCORAFENIB
     Dosage: 45 MG, 2X/DAY
     Route: 048
  3. BINIMETINIB [Suspect]
     Active Substance: BINIMETINIB
     Indication: Thyroid cancer metastatic
     Route: 065
  4. TRAMETINIB [Suspect]
     Active Substance: TRAMETINIB
     Route: 065
  5. DABRAFENIB [Suspect]
     Active Substance: DABRAFENIB
     Route: 065
  6. TAXOL [Concomitant]
     Active Substance: PACLITAXEL
     Route: 065

REACTIONS (8)
  - Acute kidney injury [Unknown]
  - Cardiomyopathy [Unknown]
  - Drug intolerance [Unknown]
  - Liver function test increased [Unknown]
  - Multiple organ dysfunction syndrome [Unknown]
  - Pancytopenia [Unknown]
  - Pyrexia [Unknown]
  - Off label use [Unknown]
